FAERS Safety Report 9657401 (Version 2)
Quarter: 2013Q4

REPORT INFORMATION
  Report Type: Spontaneous
  Country: US (occurrence: US)
  Receive Date: 20131030
  Receipt Date: 20131113
  Transmission Date: 20140711
  Serious: No
  Sender: FDA-Public Use
  Company Number: US-PFIZER INC-2013306332

PATIENT
  Age: 79 Year
  Sex: Male

DRUGS (1)
  1. TORISEL [Suspect]
     Dosage: 175 MG, WEEKLY
     Route: 042

REACTIONS (7)
  - Mouth ulceration [Unknown]
  - Back pain [Unknown]
  - Epistaxis [Unknown]
  - Cough [Unknown]
  - Skin lesion [Unknown]
  - Abdominal discomfort [Unknown]
  - Lip pain [Unknown]
